FAERS Safety Report 5273687-1 (Version None)
Quarter: 2007Q1

REPORT INFORMATION
  Report Type: 
  Country: None (occurrence: None)
  Receive Date: 20070323
  Receipt Date: 20070312
  Transmission Date: 20070707
  Serious: Yes (Hospitalization, Other)
  Sender: FDA-Public Use
  Company Number: US-NOVOPROD-250199

PATIENT
  Sex: Female
  Weight: 83.9 kg

DRUGS (11)
  1. ACTIVELLA [Suspect]
     Indication: HORMONE REPLACEMENT THERAPY
     Dosage: UNKNOWN
     Dates: start: 20020901, end: 20031124
  2. PREMPRO [Suspect]
     Indication: HORMONE REPLACEMENT THERAPY
     Dosage: 0.625 MG/2.5 MG
     Route: 048
     Dates: start: 19970425, end: 20021101
  3. XANAX [Concomitant]
     Indication: ILL-DEFINED DISORDER
     Dosage: .25 MG, QD
     Route: 048
     Dates: start: 19930101, end: 19970101
  4. ELAVIL                             /00002202/ [Concomitant]
     Indication: ILL-DEFINED DISORDER
     Dosage: 25 MG, QD
     Route: 048
     Dates: start: 19940101
  5. PAXIL [Concomitant]
     Indication: ILL-DEFINED DISORDER
     Dosage: 20 MG, QD
     Route: 048
     Dates: start: 19960101
  6. ALTACE [Concomitant]
     Indication: ILL-DEFINED DISORDER
     Dosage: 5 MG, QD
     Route: 048
     Dates: start: 19990101
  7. WELLBUTRIN [Concomitant]
     Indication: ILL-DEFINED DISORDER
     Dosage: UNKNOWN
     Route: 048
     Dates: start: 20010101, end: 20040101
  8. KLONOPIN [Concomitant]
     Indication: ILL-DEFINED DISORDER
     Dosage: .5 MG, QD
     Route: 048
     Dates: start: 19990101
  9. DARVOCET-N 100 [Concomitant]
     Indication: ILL-DEFINED DISORDER
     Dosage: UNKNOWN
     Route: 048
     Dates: start: 19940101
  10. INSULIN [Concomitant]
     Indication: ILL-DEFINED DISORDER
     Dosage: UNKNOWN
  11. EFFEXOR XR [Concomitant]
     Indication: ILL-DEFINED DISORDER
     Dosage: 75 MG, UNK
     Dates: start: 20040101

REACTIONS (1)
  - BREAST CANCER [None]
